FAERS Safety Report 8966021 (Version 1)
Quarter: 2012Q4

REPORT INFORMATION
  Report Type: 
  Country: US (occurrence: US)
  Receive Date: 20121214
  Receipt Date: 20121214
  Transmission Date: 20130627
  Serious: Yes (Other)
  Sender: FDA-Public Use
  Company Number: PHHY2012US115173

PATIENT

DRUGS (5)
  1. ASCRIPTIN BUFFERED MAX STRENGTH CAPLETS [Suspect]
     Route: 048
  2. ASCRIPTIN REGULAR STRENGTH BUFFERED ASPIRIN [Suspect]
     Dosage: 1-2 a day
     Route: 048
  3. CRESTOR [Concomitant]
  4. METOPROLOL [Concomitant]
  5. LISINOPRIL [Concomitant]

REACTIONS (5)
  - Endometriosis [Recovered/Resolved]
  - Endocarditis bacterial [Recovered/Resolved]
  - Cardiac murmur [Recovered/Resolved]
  - Atrial flutter [Recovered/Resolved]
  - Incorrect drug administration duration [Unknown]
